FAERS Safety Report 8231062-1 (Version None)
Quarter: 2012Q1

REPORT INFORMATION
  Report Type: 
  Country: None (occurrence: None)
  Receive Date: 20120323
  Receipt Date: 20110714
  Transmission Date: 20120608
  Serious: No
  Sender: FDA-Public Use
  Company Number: US-PFIZER INC-2011159899

PATIENT
  Age: 52 Year
  Sex: Female
  Weight: 107 kg

DRUGS (1)
  1. PRISTIQ [Suspect]
     Dosage: 100 MG, UNK
     Dates: start: 20080315, end: 20101023

REACTIONS (7)
  - INFLUENZA LIKE ILLNESS [None]
  - PAIN [None]
  - IRRITABILITY [None]
  - ANGER [None]
  - DRUG WITHDRAWAL SYNDROME [None]
  - DIZZINESS [None]
  - EMOTIONAL DISORDER [None]
